FAERS Safety Report 9346517 (Version 1)
Quarter: 2013Q2

REPORT INFORMATION
  Report Type: Report from Study
  Country: CA (occurrence: CA)
  Receive Date: 20130613
  Receipt Date: 20130613
  Transmission Date: 20140414
  Serious: Yes (Hospitalization)
  Sender: FDA-Public Use
  Company Number: CA-JNJFOC-20130604986

PATIENT
  Age: 83 Year
  Sex: Female
  Weight: 77.5 kg

DRUGS (17)
  1. REMICADE [Suspect]
     Indication: RHEUMATOID ARTHRITIS
     Route: 042
     Dates: start: 20130605
  2. REMICADE [Suspect]
     Indication: RHEUMATOID ARTHRITIS
     Route: 042
     Dates: start: 20080116
  3. VALSARTAN [Concomitant]
     Dosage: EVERY A.M
     Route: 065
  4. VITAMIN D [Concomitant]
     Dosage: EVERY A.M
     Route: 065
  5. ATORVASTATIN [Concomitant]
     Dosage: AT EVERY SUPPER
     Route: 065
  6. CLOPIDOGREL [Concomitant]
     Dosage: AT EVERY SUPPER
     Route: 065
  7. ACETAMINOPHEN [Concomitant]
     Route: 065
  8. LASIX [Concomitant]
     Dosage: AT 08:00 + 14:00
     Route: 065
  9. BISOPROLOL [Concomitant]
     Dosage: EVERY A.M
     Route: 065
  10. FOLIC ACID [Concomitant]
     Dosage: 5 MG TABLET, 1/2 TABLET EVERY A.M
     Route: 065
  11. RABEPRAZOLE [Concomitant]
     Dosage: EVERY A.M
     Route: 065
  12. SPIRONOLACTONE [Concomitant]
     Dosage: EVERY A.M
     Route: 065
  13. CALTRATE [Concomitant]
     Route: 065
  14. SENOKOT [Concomitant]
     Route: 065
  15. METHOTREXATE [Concomitant]
     Route: 058
  16. NOVOLIN GE [Concomitant]
     Dosage: 38 UNITS AT BREAKFAST; 16 UNITS AT SUPPER
     Route: 065
  17. LACTULOSE [Concomitant]
     Route: 065

REACTIONS (1)
  - Ischaemic stroke [Recovering/Resolving]
